FAERS Safety Report 22355563 (Version 2)
Quarter: 2023Q2

REPORT INFORMATION
  Report Type: Spontaneous
  Country: IN (occurrence: IN)
  Receive Date: 20230523
  Receipt Date: 20230530
  Transmission Date: 20230722
  Serious: Yes (Hospitalization, Other)
  Sender: FDA-Public Use
  Company Number: IN-SA-SAC20230523000043

PATIENT
  Sex: Male
  Weight: 2.27 kg

DRUGS (12)
  1. RIFAMPIN [Suspect]
     Active Substance: RIFAMPIN
     Indication: Meningitis bacterial
     Dosage: UNK
     Route: 048
  2. RIFAMPIN [Suspect]
     Active Substance: RIFAMPIN
     Indication: Meningitis neonatal
  3. LEVOFLOXACIN [Suspect]
     Active Substance: LEVOFLOXACIN
     Indication: Meningitis bacterial
     Dosage: UNK
  4. LEVOFLOXACIN [Suspect]
     Active Substance: LEVOFLOXACIN
     Indication: Meningitis neonatal
  5. AMIKACIN [Suspect]
     Active Substance: AMIKACIN
     Indication: Evidence based treatment
  6. AMIKACIN [Suspect]
     Active Substance: AMIKACIN
     Indication: Meningitis bacterial
  7. AMIKACIN [Suspect]
     Active Substance: AMIKACIN
     Indication: Meningitis neonatal
  8. MEROPENEM [Suspect]
     Active Substance: MEROPENEM
     Indication: Evidence based treatment
  9. MEROPENEM [Suspect]
     Active Substance: MEROPENEM
     Indication: Meningitis bacterial
  10. MEROPENEM [Suspect]
     Active Substance: MEROPENEM
     Indication: Meningitis neonatal
  11. VANCOMYCIN [Suspect]
     Active Substance: VANCOMYCIN
     Indication: Meningitis bacterial
     Dosage: UNK
  12. VANCOMYCIN [Suspect]
     Active Substance: VANCOMYCIN
     Indication: Meningitis neonatal

REACTIONS (4)
  - Hydrocephalus [Unknown]
  - Developmental delay [Unknown]
  - Off label use [Unknown]
  - Product administered to patient of inappropriate age [Unknown]
